FAERS Safety Report 10006464 (Version 1)
Quarter: 2014Q1

REPORT INFORMATION
  Report Type: Spontaneous
  Country: US (occurrence: None)
  Receive Date: 20140312
  Receipt Date: 20140312
  Transmission Date: 20141002
  Serious: Yes (Life-Threatening, Hospitalization)
  Sender: FDA-Public Use
  Company Number: None

PATIENT
  Age: 59 Year
  Sex: Male
  Weight: 101.61 kg

DRUGS (1)
  1. DEPO TESTOSTERONE [Suspect]
     Indication: FATIGUE
     Route: 030
     Dates: start: 20130101, end: 20131115

REACTIONS (2)
  - Cerebrovascular accident [None]
  - Cerebral ischaemia [None]
